FAERS Safety Report 9100333 (Version 1)
Quarter: 2013Q1

REPORT INFORMATION
  Report Type: Spontaneous
  Country: ES (occurrence: ES)
  Receive Date: 20130215
  Receipt Date: 20130215
  Transmission Date: 20140127
  Serious: Yes (Hospitalization)
  Sender: FDA-Public Use
  Company Number: ES-BRISTOL-MYERS SQUIBB COMPANY-17357534

PATIENT
  Age: 68 Year
  Sex: Male

DRUGS (4)
  1. VEPESID [Suspect]
     Indication: GASTRIC CANCER
     Route: 048
     Dates: start: 20120725, end: 20120726
  2. XENETIX [Suspect]
     Dosage: XENETIX 300 MG
     Route: 042
     Dates: start: 20120726, end: 20120726
  3. KYTRIL [Concomitant]
     Indication: VOMITING
     Dosage: KYTRIL 1 MG
     Route: 048
     Dates: start: 20120725
  4. PRIMPERAN [Concomitant]
     Indication: VOMITING
     Route: 048
     Dates: start: 20120725

REACTIONS (4)
  - Urticaria [Recovered/Resolved]
  - Renal failure acute [Recovered/Resolved]
  - Angioedema [Recovered/Resolved]
  - Nausea [Recovered/Resolved]
